FAERS Safety Report 17769583 (Version 1)
Quarter: 2020Q2

REPORT INFORMATION
  Report Type: Spontaneous
  Country: IT (occurrence: IT)
  Receive Date: 20200512
  Receipt Date: 20200512
  Transmission Date: 20200714
  Serious: No
  Sender: FDA-Public Use
  Company Number: IT-LUPIN PHARMACEUTICALS INC.-2020-01209

PATIENT
  Age: 35 Year
  Sex: Female

DRUGS (1)
  1. TESTOSTERONE. [Suspect]
     Active Substance: TESTOSTERONE
     Indication: GENDER REASSIGNMENT THERAPY
     Dosage: UNK (100-200 MILLIGRAM, EVERY 2 WEEKS)
     Route: 030

REACTIONS (3)
  - Chloasma [Unknown]
  - Amenorrhoea [Unknown]
  - Overdose [Unknown]
